FAERS Safety Report 18037729 (Version 3)
Quarter: 2021Q2

REPORT INFORMATION
  Report Type: Spontaneous
  Country: US (occurrence: US)
  Receive Date: 20200717
  Receipt Date: 20210415
  Transmission Date: 20210717
  Serious: No
  Sender: FDA-Public Use
  Company Number: US-ASTRAZENECA-2020SE88883

PATIENT

DRUGS (14)
  1. OMEPRAZOLE. [Suspect]
     Active Substance: OMEPRAZOLE
     Indication: BREAST CANCER
     Dosage: 10.0MG UNKNOWN
     Route: 048
  2. CENTRUM [Concomitant]
     Active Substance: VITAMINS
  3. XARELTO [Concomitant]
     Active Substance: RIVAROXABAN
  4. OSTEO BI?FLEX [Concomitant]
     Active Substance: CHONDROITIN SULFATE A\GLUCOSAMINE
  5. GABAPENTIN. [Concomitant]
     Active Substance: GABAPENTIN
  6. GLIPIZIDE. [Concomitant]
     Active Substance: GLIPIZIDE
  7. ATENOLOL. [Suspect]
     Active Substance: ATENOLOL
     Route: 065
  8. HYDROCHLOROTHIAZIDE. [Concomitant]
     Active Substance: HYDROCHLOROTHIAZIDE
  9. METOPROLOL SUCCINATE. [Concomitant]
     Active Substance: METOPROLOL SUCCINATE
  10. LISINOPRIL. [Suspect]
     Active Substance: LISINOPRIL
     Route: 048
  11. IBRANCE [Suspect]
     Active Substance: PALBOCICLIB
     Indication: BREAST CANCER
     Route: 048
     Dates: start: 20200527
  12. FASLODEX [Suspect]
     Active Substance: FULVESTRANT
     Dosage: 250 MG/5ML, UNKNOWN.
     Route: 030
  13. ZOMETA [Concomitant]
     Active Substance: ZOLEDRONIC ACID
  14. TYLENOL [Concomitant]
     Active Substance: ACETAMINOPHEN

REACTIONS (4)
  - Lip disorder [Recovered/Resolved]
  - Oral disorder [Unknown]
  - Drug hypersensitivity [Unknown]
  - Eye disorder [Unknown]
